FAERS Safety Report 9396447 (Version 3)
Quarter: 2013Q3

REPORT INFORMATION
  Report Type: Report from Study
  Country: UA (occurrence: UA)
  Receive Date: 20130711
  Receipt Date: 20130802
  Transmission Date: 20140515
  Serious: Yes (Life-Threatening, Hospitalization, Other)
  Sender: FDA-Public Use
  Company Number: UA-TEVA-418635USA

PATIENT
  Age: 67 Year
  Sex: Male
  Weight: 74 kg

DRUGS (17)
  1. BENDAMUSTINE [Suspect]
     Indication: CHRONIC LYMPHOCYTIC LEUKAEMIA
     Route: 042
     Dates: start: 20130418
  2. BENDAMUSTINE [Suspect]
     Route: 042
     Dates: start: 20130516
  3. RITUXIMAB [Suspect]
     Indication: CHRONIC LYMPHOCYTIC LEUKAEMIA
     Route: 042
     Dates: start: 20130417
  4. RITUXIMAB [Suspect]
     Route: 042
     Dates: start: 20130505
  5. RITUXIMAB [Suspect]
     Route: 042
     Dates: start: 20130515
  6. IBRUTINIB/PLACEBO [Suspect]
     Indication: CHRONIC LYMPHOCYTIC LEUKAEMIA
     Dosage: 420 MILLIGRAM DAILY;
     Route: 048
     Dates: start: 20130418
  7. IBRUTINIB/PLACEBO [Suspect]
     Dosage: 420 MILLIGRAM DAILY;
     Route: 048
     Dates: start: 20130702
  8. PARACETAMOL [Concomitant]
     Indication: PREMEDICATION
     Route: 048
  9. ACYCLOVIR [Concomitant]
     Indication: PROPHYLAXIS
     Dosage: 800 MILLIGRAM DAILY;
  10. CLINDAMYCIN [Concomitant]
     Indication: BRONCHITIS
     Dosage: 450 MILLIGRAM DAILY;
     Route: 048
     Dates: start: 20130612
  11. ACETYLCYSTEINE [Concomitant]
     Indication: BRONCHITIS
     Dosage: 600 MILLIGRAM DAILY;
     Route: 048
     Dates: start: 20130612
  12. GLUTARGIN [Concomitant]
     Dosage: 2 GRAM DAILY;
     Route: 042
  13. ORNITOX [Concomitant]
     Dosage: 3 GRAM DAILY;
     Route: 048
  14. HEPA-MERZ [Concomitant]
     Dosage: 10 ML DAILY;
     Route: 042
  15. HEPIRAL [Concomitant]
     Route: 042
  16. CEFTRIAXONE [Concomitant]
     Indication: BRONCHITIS
     Dosage: .2857 GRAM DAILY;
     Route: 030
  17. PARACETAMOL [Concomitant]

REACTIONS (4)
  - Sick sinus syndrome [Recovering/Resolving]
  - Pneumonia [Recovered/Resolved with Sequelae]
  - Toxic encephalopathy [Recovered/Resolved]
  - Cardiomyopathy [Unknown]
